FAERS Safety Report 17652985 (Version 16)
Quarter: 2020Q4

REPORT INFORMATION
  Report Type: Report from Study
  Country: AR (occurrence: AR)
  Receive Date: 20200409
  Receipt Date: 20201027
  Transmission Date: 20210113
  Serious: Yes (Death, Life-Threatening, Hospitalization)
  Sender: FDA-Public Use
  Company Number: AR-EISAI MEDICAL RESEARCH-EC-2020-073044

PATIENT
  Age: 72 Year
  Sex: Male
  Weight: 69.5 kg

DRUGS (5)
  1. BLOOD CELLS, RED (BLOOD CELL, RED) [Concomitant]
     Dates: start: 20200325, end: 20200325
  2. PEMBROLIZUMAB. [Suspect]
     Active Substance: PEMBROLIZUMAB
     Route: 042
     Dates: start: 20200330, end: 20200330
  3. PEMBROLIZUMAB. [Suspect]
     Active Substance: PEMBROLIZUMAB
     Indication: TRANSITIONAL CELL CARCINOMA
     Route: 042
     Dates: start: 20200310, end: 20200310
  4. LIDOCAINE (+) SUCRALFATE (LIDOCAINE, SUCRALFATE) [Concomitant]
     Dates: start: 20200322
  5. LENVATINIB [Suspect]
     Active Substance: LENVATINIB
     Indication: TRANSITIONAL CELL CARCINOMA
     Route: 048
     Dates: start: 20200310, end: 20200322

REACTIONS (3)
  - Pneumonia [Recovered/Resolved]
  - Acute myeloid leukaemia [Fatal]
  - Platelet count decreased [Not Recovered/Not Resolved]

NARRATIVE: CASE EVENT DATE: 20200325
